FAERS Safety Report 7673390-4 (Version None)
Quarter: 2011Q3

REPORT INFORMATION
  Report Type: 
  Country: None (occurrence: None)
  Receive Date: 20110810
  Receipt Date: 20110803
  Transmission Date: 20111222
  Serious: Yes (Death, Life-Threatening, Hospitalization)
  Sender: FDA-Public Use
  Company Number: DE-JNJFOC-20110801250

PATIENT
  Age: 78 Year
  Sex: Female

DRUGS (14)
  1. ISOSORBIDE DINITRATE [Concomitant]
     Route: 048
     Dates: end: 20081024
  2. RISPERDAL [Suspect]
     Route: 048
     Dates: start: 20080923, end: 20080925
  3. RAMIPRIL [Concomitant]
     Route: 048
     Dates: end: 20080827
  4. RISPERDAL [Suspect]
     Route: 048
     Dates: start: 20081019, end: 20081021
  5. RISPERDAL [Suspect]
     Route: 048
     Dates: start: 20081022, end: 20081024
  6. RISPERDAL [Suspect]
     Route: 048
     Dates: start: 20080830, end: 20080901
  7. HYDROCHLOROTHIAZIDE [Concomitant]
     Route: 048
     Dates: end: 20081024
  8. RISPERDAL [Suspect]
     Route: 048
     Dates: start: 20080902, end: 20080908
  9. LACTULOSE [Concomitant]
     Route: 048
     Dates: end: 20081024
  10. RISPERDAL [Suspect]
     Route: 048
     Dates: start: 20080909, end: 20080922
  11. RISPERDAL [Suspect]
     Indication: VASCULAR DEMENTIA
     Route: 048
     Dates: start: 20080926, end: 20080928
  12. RAMIPRIL [Concomitant]
     Route: 048
     Dates: start: 20080828, end: 20081024
  13. RISPERDAL [Suspect]
     Route: 048
     Dates: start: 20081013, end: 20081014
  14. RISPERDAL [Suspect]
     Route: 048
     Dates: start: 20080827, end: 20080829

REACTIONS (4)
  - FATIGUE [None]
  - SYNCOPE [None]
  - DYSPHAGIA [None]
  - SUDDEN DEATH [None]
